FAERS Safety Report 6030078-3 (Version None)
Quarter: 2009Q1

REPORT INFORMATION
  Report Type: 
  Country: None (occurrence: None)
  Receive Date: 20090106
  Receipt Date: 20090106
  Transmission Date: 20090719
  Serious: No
  Sender: FDA-Public Use
  Company Number: None

PATIENT
  Age: 33 Year
  Sex: Male
  Weight: 81.6475 kg

DRUGS (1)
  1. BUDEPRION XL TEVA [Suspect]
     Indication: DEPRESSION
     Dosage: 150 MG 1 TIME PER DAY PO
     Route: 048
     Dates: start: 20080103, end: 20080105

REACTIONS (6)
  - ASTHENIA [None]
  - DEPRESSION [None]
  - DISTURBANCE IN ATTENTION [None]
  - FEELING ABNORMAL [None]
  - FEELING OF DESPAIR [None]
  - PRODUCT QUALITY ISSUE [None]
